FAERS Safety Report 7231703-1 (Version None)
Quarter: 2011Q1

REPORT INFORMATION
  Report Type: 
  Country: None (occurrence: None)
  Receive Date: 20110118
  Receipt Date: 20110112
  Transmission Date: 20110831
  Serious: Yes (Hospitalization)
  Sender: FDA-Public Use
  Company Number: CA-ABBOTT-11P-028-0697470-00

PATIENT
  Sex: Female
  Weight: 69.916 kg

DRUGS (3)
  1. HUMIRA [Suspect]
     Indication: CROHN'S DISEASE
     Route: 058
     Dates: start: 20100224
  2. PURINETHOL [Concomitant]
     Indication: CROHN'S DISEASE
     Dates: start: 20100801, end: 20101223
  3. HUMIRA [Suspect]
     Dates: end: 20110107

REACTIONS (6)
  - GASTROINTESTINAL DISORDER [None]
  - ALOPECIA [None]
  - EYE SWELLING [None]
  - VISION BLURRED [None]
  - HYPERSENSITIVITY [None]
  - RASH [None]
